FAERS Safety Report 19713356 (Version 1)
Quarter: 2021Q3

REPORT INFORMATION
  Report Type: Spontaneous
  Country: US (occurrence: US)
  Receive Date: 20210817
  Receipt Date: 20210817
  Transmission Date: 20211014
  Serious: Yes (Hospitalization)
  Sender: FDA-Public Use
  Company Number: None

PATIENT
  Age: 22 Year
  Sex: Female

DRUGS (1)
  1. PARAGARD T 380A [Suspect]
     Active Substance: COPPER

REACTIONS (6)
  - Muscle spasms [None]
  - Device expulsion [None]
  - Uterine injury [None]
  - Ill-defined disorder [None]
  - Embedded device [None]
  - Pelvic pain [None]

NARRATIVE: CASE EVENT DATE: 20180115
